FAERS Safety Report 6724702-7 (Version None)
Quarter: 2010Q2

REPORT INFORMATION
  Report Type: 
  Country: None (occurrence: None)
  Receive Date: 20100511
  Receipt Date: 20070608
  Transmission Date: 20101027
  Serious: Yes (Other)
  Sender: FDA-Public Use
  Company Number: 2009-3097

PATIENT
  Sex: Male

DRUGS (1)
  1. APOKYN                         (APOMORPHINE HYDROCHLORIDE)  SUBCUTANEO [Suspect]
     Indication: PARKINSON'S DISEASE
     Route: 058

REACTIONS (1)
  - NEOPLASM MALIGNANT [None]
